FAERS Safety Report 6261532-7 (Version None)
Quarter: 2009Q3

REPORT INFORMATION
  Report Type: 
  Country: None (occurrence: None)
  Receive Date: 20090709
  Receipt Date: 20090629
  Transmission Date: 20100115
  Serious: Yes (Other)
  Sender: FDA-Public Use
  Company Number: IN-PFIZER INC-2009234047

PATIENT
  Age: 26 Year

DRUGS (12)
  1. FLUCONAZOLE [Suspect]
     Indication: CANDIDIASIS
     Dosage: UNK
  2. FLUCONAZOLE [Suspect]
  3. MORPHINE [Concomitant]
  4. MIDAZOLAM [Concomitant]
  5. IMIPENEM [Concomitant]
  6. CIPROFLOXACIN [Concomitant]
  7. METRONIDAZOLE [Concomitant]
  8. INSULIN [Concomitant]
  9. HEPARIN [Concomitant]
  10. SOLUTIONS FOR PARENTERAL NUTRITION [Concomitant]
  11. CALCIUM [Concomitant]
  12. RED BLOOD CELLS [Concomitant]

REACTIONS (3)
  - ILEUS PARALYTIC [None]
  - TORSADE DE POINTES [None]
  - VENTRICULAR FIBRILLATION [None]
